FAERS Safety Report 9003408 (Version 2)
Quarter: 2013Q1

REPORT INFORMATION
  Report Type: Spontaneous
  Country: US (occurrence: US)
  Receive Date: 20130108
  Receipt Date: 20130204
  Transmission Date: 20140127
  Serious: Yes (Death)
  Sender: FDA-Public Use
  Company Number: US-GLAXOSMITHKLINE-A0999653A

PATIENT
  Age: 89 Year
  Sex: Male

DRUGS (3)
  1. VOTRIENT [Suspect]
     Indication: RENAL CANCER
     Dosage: 800MG PER DAY
     Route: 048
     Dates: start: 20120918
  2. ZOFRAN [Concomitant]
  3. OXYBUTYNIN [Concomitant]

REACTIONS (9)
  - Urinary tract infection [Unknown]
  - Cerebrovascular accident [Unknown]
  - Death [Fatal]
  - Dysphagia [Unknown]
  - Confusional state [Recovering/Resolving]
  - Amnesia [Unknown]
  - Hypokinesia [Recovering/Resolving]
  - Decreased appetite [Recovering/Resolving]
  - Hypersomnia [Recovering/Resolving]
